FAERS Safety Report 8413860-4 (Version None)
Quarter: 2012Q2

REPORT INFORMATION
  Report Type: 
  Country: None (occurrence: None)
  Receive Date: 20120323
  Receipt Date: 20110222
  Transmission Date: 20120825
  Serious: Yes (Other)
  Sender: FDA-Public Use
  Company Number: 163-21880-11022774

PATIENT
  Age: 49 Year
  Sex: Male

DRUGS (2)
  1. REVLIMID [Suspect]
     Indication: MULTIPLE MYELOMA
     Dosage: 25 MG, 1 IN 1 D, PO 10 MG, 1 IN 1 D, PO
     Route: 048
     Dates: start: 20110215
  2. REVLIMID [Suspect]
     Indication: MULTIPLE MYELOMA
     Dosage: 25 MG, 1 IN 1 D, PO 10 MG, 1 IN 1 D, PO
     Route: 048
     Dates: start: 20110201

REACTIONS (1)
  - RENAL FAILURE [None]
